FAERS Safety Report 19682502 (Version 2)
Quarter: 2021Q3

REPORT INFORMATION
  Report Type: Report from Study
  Country: US (occurrence: US)
  Receive Date: 20210810
  Receipt Date: 20210902
  Transmission Date: 20211014
  Serious: Yes (Hospitalization, Other)
  Sender: FDA-Public Use
  Company Number: US-TAKEDA-2021TUS048663

PATIENT
  Sex: Female
  Weight: 61 kg

DRUGS (25)
  1. CUVITRU [Suspect]
     Active Substance: HUMAN IMMUNOGLOBULIN G
     Indication: IMMUNODEFICIENCY COMMON VARIABLE
     Dosage: 6 GRAM, 3/WEEK
     Route: 058
     Dates: start: 20210728
  2. ROPINIROLE. [Concomitant]
     Active Substance: ROPINIROLE
  3. LEVOTHYROXINE. [Concomitant]
     Active Substance: LEVOTHYROXINE
  4. CALCITRIOL. [Concomitant]
     Active Substance: CALCITRIOL
  5. GLIMEPIRIDE. [Concomitant]
     Active Substance: GLIMEPIRIDE
  6. ACETAMINOPHEN. [Concomitant]
     Active Substance: ACETAMINOPHEN
  7. DIPHENHYDRAMINE. [Concomitant]
     Active Substance: DIPHENHYDRAMINE
  8. HYDROXYZINE [Concomitant]
     Active Substance: HYDROXYZINE HYDROCHLORIDE
  9. METOLAZONE. [Concomitant]
     Active Substance: METOLAZONE
  10. DIGOXIN. [Concomitant]
     Active Substance: DIGOXIN
  11. SPIRONOLACTONE. [Concomitant]
     Active Substance: SPIRONOLACTONE
  12. LASIX [Concomitant]
     Active Substance: FUROSEMIDE
  13. MAGOX [Concomitant]
  14. PREGABALIN. [Concomitant]
     Active Substance: PREGABALIN
  15. NITROSTAT [Concomitant]
     Active Substance: NITROGLYCERIN
  16. KLOR?CON [Concomitant]
     Active Substance: POTASSIUM CHLORIDE
  17. ELIQUIS [Concomitant]
     Active Substance: APIXABAN
  18. ACYCLOVIR. [Concomitant]
     Active Substance: ACYCLOVIR
  19. ALLOPURINOL. [Concomitant]
     Active Substance: ALLOPURINOL
  20. LOPRESSOR [Concomitant]
     Active Substance: METOPROLOL TARTRATE
  21. EPINEPHRINE. [Concomitant]
     Active Substance: EPINEPHRINE
  22. LMX [Concomitant]
  23. B6 [Concomitant]
     Active Substance: PYRIDOXINE HYDROCHLORIDE
  24. DILTIAZEM. [Concomitant]
     Active Substance: DILTIAZEM
  25. OMEPRAZOLE. [Concomitant]
     Active Substance: OMEPRAZOLE

REACTIONS (3)
  - Hypercalcaemia [Unknown]
  - Cardiac failure congestive [Unknown]
  - Dysarthria [Unknown]
